FAERS Safety Report 6406740-7 (Version None)
Quarter: 2009Q4

REPORT INFORMATION
  Report Type: 
  Country: None (occurrence: None)
  Receive Date: 20091020
  Receipt Date: 20091016
  Transmission Date: 20100525
  Serious: Yes (Life-Threatening)
  Sender: FDA-Public Use
  Company Number: US-JNJFOC-20091005781

PATIENT
  Age: 14 Day
  Sex: Male

DRUGS (1)
  1. LOPERAMIDE HYDROCHLORIDE [Suspect]
     Indication: DIARRHOEA
     Dosage: 1MG PERORAL DOSE WAS GIVEN FIRST AND LATER 1MG 7 HOURS LATER WAS ADMINISTERED
     Route: 048

REACTIONS (5)
  - COMA [None]
  - ILEUS [None]
  - OVERDOSE [None]
  - RESPIRATORY DEPRESSION [None]
  - WRONG DRUG ADMINISTERED [None]
